FAERS Safety Report 5909933-8 (Version None)
Quarter: 2008Q4

REPORT INFORMATION
  Report Type: 
  Country: None (occurrence: None)
  Receive Date: 20081002
  Receipt Date: 20080924
  Transmission Date: 20090506
  Serious: Yes (Disabling)
  Sender: FDA-Public Use
  Company Number: APP200800439

PATIENT
  Age: 48 Year
  Sex: Male

DRUGS (6)
  1. SENSORCAINE [Suspect]
     Indication: MUSCULOSKELETAL PAIN
     Dosage: CONTINUOUS VIA PAIN PUMP
     Dates: start: 20060511
  2. SEBSORCAINE WITH EPINEPHRINE (BUPIVACAINE HYDROCHLORIDE) [Suspect]
     Indication: MUSCULOSKELETAL PAIN
     Dosage: CONTINUOUS VIA PAIN PUMP
     Dates: start: 20060511
  3. BREG PAIN PUMP [Suspect]
     Indication: MUSCULOSKELETAL PAIN
     Dates: start: 20060511
  4. ANCEF [Concomitant]
  5. ACIPHEX [Concomitant]
  6. HYDROCODONE (HYDROCODONE) [Concomitant]

REACTIONS (9)
  - ACTIVITIES OF DAILY LIVING IMPAIRED [None]
  - BURSITIS [None]
  - CHONDROLYSIS [None]
  - DEVICE DISLOCATION [None]
  - JOINT EFFUSION [None]
  - LIGAMENT RUPTURE [None]
  - LOOSE BODY IN JOINT [None]
  - OSTEOARTHRITIS [None]
  - ROTATOR CUFF SYNDROME [None]
